FAERS Safety Report 7311330-8 (Version None)
Quarter: 2011Q1

REPORT INFORMATION
  Report Type: 
  Country: None (occurrence: None)
  Receive Date: 20110119
  Receipt Date: 20101111
  Transmission Date: 20110831
  Serious: Yes (Other)
  Sender: FDA-Public Use
  Company Number: A-NJ2010-41581

PATIENT
  Age: 51 Year
  Sex: Male

DRUGS (10)
  1. NORVASC [Concomitant]
  2. SIMVASTATIN [Concomitant]
  3. HYDROCHLOROTHIAZIDE (HYDFROCHLOROTHIAZIDE) [Concomitant]
  4. REVATIO [Concomitant]
  5. ALLEGRA [Concomitant]
  6. BENAZEPRIL HYDROCHLORIDE [Concomitant]
  7. WARFARIN SODIUM [Concomitant]
  8. FUROSEMIDE (FUROSEMIDE SODIUM) [Concomitant]
  9. TRACLEER [Suspect]
     Indication: PULMONARY ARTERIAL HYPERTENSION
     Dosage: 125 MG, BID, ORAL, 62.5 MG, BID, ORAL
     Route: 048
     Dates: start: 20100901, end: 20101007
  10. TRACLEER [Suspect]
     Indication: PULMONARY ARTERIAL HYPERTENSION
     Dosage: 125 MG, BID, ORAL, 62.5 MG, BID, ORAL
     Route: 048
     Dates: start: 20100805, end: 20100901

REACTIONS (1)
  - LIVER FUNCTION TEST ABNORMAL [None]
